FAERS Safety Report 11896727 (Version 2)
Quarter: 2016Q1

REPORT INFORMATION
  Report Type: Report from Study
  Country: CN (occurrence: CN)
  Receive Date: 20160107
  Receipt Date: 20160127
  Transmission Date: 20160526
  Serious: No
  Sender: FDA-Public Use
  Company Number: CN-009507513-1601CHN001285

PATIENT
  Sex: Female

DRUGS (7)
  1. DIPHERELINE (TRIPTORELIN ACETATE) [Suspect]
     Active Substance: TRIPTORELIN ACETATE
     Indication: IN VITRO FERTILISATION
     Dosage: 1.875MG, ONCE, UPON TAKING 16TH MARVELON TABLET
     Route: 030
  2. MENOTROPINS [Suspect]
     Active Substance: MENOTROPINS
     Indication: IN VITRO FERTILISATION
     Dosage: 75-150 U, UNK
  3. UTROGESTAN [Suspect]
     Active Substance: PROGESTERONE
     Indication: IN VITRO FERTILISATION
     Dosage: 0.3 G, TID, SINCE THE DAY OF OOCYTE RETRIEVAL UNTIL THE CONFIRMATION OF PREGNANCY
     Route: 067
  4. MARVELON [Suspect]
     Active Substance: DESOGESTREL\ETHINYL ESTRADIOL
     Dosage: 1 TABLET DAILY; STARTED ON DAYS 3-5 OF MENSTRAL PERIOD AND CONTINUED IT FOR THREE CONSECUTIVE WEEKS
     Route: 048
  5. UROFOLLITROPIN [Suspect]
     Active Substance: UROFOLLITROPIN
     Indication: IN VITRO FERTILISATION
     Dosage: 112.5 - 150.0 U, QD, UNTIL THE DAY OF HCG INJECTION
  6. DUPHASTON [Suspect]
     Active Substance: DYDROGESTERONE
     Indication: IN VITRO FERTILISATION
     Dosage: 20 MG, QD SINCE THE DAY OF OOCYTE RETRIEVAL UNTIL THE CONFIRMATION OF PREGNANCY
     Route: 048
  7. GONADOTROPIN, CHORIONIC [Suspect]
     Active Substance: CHORIOGONADOTROPIN ALFA
     Indication: IN VITRO FERTILISATION
     Dosage: 5000-7000 U, ONCE
     Route: 030

REACTIONS (2)
  - Abortion spontaneous [None]
  - Maternal exposure before pregnancy [Recovered/Resolved]
